FAERS Safety Report 5025301-8 (Version None)
Quarter: 2006Q2

REPORT INFORMATION
  Report Type: 
  Country: None (occurrence: None)
  Receive Date: 20060426
  Receipt Date: 20060113
  Transmission Date: 20061013
  Serious: Yes (Other)
  Sender: FDA-Public Use
  Company Number: 2005171542

PATIENT
  Sex: Female

DRUGS (2)
  1. LYRICA [Suspect]
     Indication: CONVULSION
     Dosage: 25 MG (25 MG, 1 IN 1 D)
     Dates: start: 20051211
  2. DIOVAN [Concomitant]

REACTIONS (1)
  - WEIGHT INCREASED [None]
